FAERS Safety Report 8200630-5 (Version None)
Quarter: 2012Q1

REPORT INFORMATION
  Report Type: 
  Country: None (occurrence: None)
  Receive Date: 20120312
  Receipt Date: 20120306
  Transmission Date: 20120608
  Serious: No
  Sender: FDA-Public Use
  Company Number: US-PFIZER INC-2012059740

PATIENT

DRUGS (5)
  1. POTASSIUM PENICILLIN G [Suspect]
     Dosage: UNK
  2. VYTORIN [Suspect]
     Dosage: UNK
  3. ZETIA [Suspect]
  4. BENTYL [Suspect]
     Dosage: UNK
  5. CIPROFLOXACIN [Suspect]
     Dosage: UNK

REACTIONS (3)
  - ABDOMINAL DISCOMFORT [None]
  - DRUG HYPERSENSITIVITY [None]
  - DIARRHOEA [None]
